FAERS Safety Report 4552148-9 (Version None)
Quarter: 2005Q1

REPORT INFORMATION
  Report Type: 
  Country: None (occurrence: None)
  Receive Date: 20050112
  Receipt Date: 20050104
  Transmission Date: 20050727
  Serious: Yes (Other)
  Sender: FDA-Public Use
  Company Number: 2004088413

PATIENT
  Age: 54 Year
  Sex: Male
  Weight: 115.6672 kg

DRUGS (11)
  1. LIPITOR [Suspect]
     Indication: MIXED HYPERLIPIDAEMIA
     Dosage: 40 MG (40 MG, 1 IN 1 D), ORAL
     Route: 048
     Dates: end: 20041001
  2. FENOFIBRATE [Suspect]
     Indication: HYPERTRIGLYCERIDAEMIA
     Dosage: 160 MG (160 MG, 1 IN 1 D), ORAL
     Route: 048
     Dates: end: 20041001
  3. TAMSULOSIN (TAMSULOSIN) [Concomitant]
  4. INSULIN LISPRO (INSULIN LISPRO) [Concomitant]
  5. LISNOPRIL (LISINOPRIL) [Concomitant]
  6. WARFARIN SODIUM [Concomitant]
  7. AMIODARONE HCL [Concomitant]
  8. TORASEMIDE (TORAASMIDE) [Concomitant]
  9. DIGOXIN [Concomitant]
  10. CARVEDIOL (CARVEDIOLOL) [Concomitant]
  11. SPIRONOLACTONE [Concomitant]

REACTIONS (5)
  - BLOOD CREATINE PHOSPHOKINASE INCREASED [None]
  - CONTUSION [None]
  - DIFFICULTY IN WALKING [None]
  - HAEMATOMA [None]
  - MYOSITIS [None]
